FAERS Safety Report 16057048 (Version 2)
Quarter: 2019Q2

REPORT INFORMATION
  Report Type: Spontaneous
  Country: US (occurrence: US)
  Receive Date: 20190311
  Receipt Date: 20190626
  Transmission Date: 20190711
  Serious: Yes (Other)
  Sender: FDA-Public Use
  Company Number: US-009507513-1903USA001463

PATIENT
  Age: 75 Year
  Sex: Female

DRUGS (1)
  1. KEYTRUDA [Suspect]
     Active Substance: PEMBROLIZUMAB
     Dosage: 200 MILLIGRAM, 1/2 HOUR DURATION
     Dates: start: 20190211

REACTIONS (10)
  - Constipation [Recovered/Resolved]
  - Fear of eating [Recovered/Resolved]
  - Myalgia [Unknown]
  - Oral pain [Unknown]
  - Arthralgia [Unknown]
  - Vomiting [Recovered/Resolved]
  - Nausea [Recovered/Resolved]
  - Dyspnoea [Recovered/Resolved]
  - Fatigue [Unknown]
  - Lung operation [Unknown]

NARRATIVE: CASE EVENT DATE: 201902
